FAERS Safety Report 7812876-6 (Version None)
Quarter: 2011Q4

REPORT INFORMATION
  Report Type: 
  Country: None (occurrence: None)
  Receive Date: 20111013
  Receipt Date: 20111010
  Transmission Date: 20120403
  Serious: Yes (Other)
  Sender: FDA-Public Use
  Company Number: CHPA2011US08033

PATIENT
  Age: 67 Year
  Sex: Female

DRUGS (1)
  1. THERAPEUTIC MINERAL ICE [Suspect]
     Indication: PAIN
     Dosage: APPLIED TO THE AFFECTED AREA, PRN
     Route: 061

REACTIONS (3)
  - BRONCHITIS [None]
  - MALAISE [None]
  - DRUG INEFFECTIVE [None]
